FAERS Safety Report 15974582 (Version 1)
Quarter: 2019Q1

REPORT INFORMATION
  Report Type: Report from Study
  Country: DE (occurrence: DE)
  Receive Date: 20190218
  Receipt Date: 20190218
  Transmission Date: 20190418
  Serious: Yes (Death, Hospitalization, Other)
  Sender: FDA-Public Use
  Company Number: DE-BRISTOL-MYERS SQUIBB COMPANY-BMS-2018-095692

PATIENT
  Age: 59 Year
  Sex: Female

DRUGS (7)
  1. NIVOLUMAB [Suspect]
     Active Substance: NIVOLUMAB
     Indication: NON-SMALL CELL LUNG CANCER
     Dosage: UNK, Q2WK
     Route: 042
     Dates: start: 20180713, end: 20180824
  2. METHOCARBAMOL. [Concomitant]
     Active Substance: METHOCARBAMOL
     Indication: MALIGNANT NEOPLASM PROGRESSION
     Dosage: 1500 MG, QD
     Route: 065
  3. OXYCODONE/NALOXONE SANDOZ [Concomitant]
     Indication: MALIGNANT NEOPLASM PROGRESSION
     Dosage: 10 MG, TID
     Route: 065
     Dates: start: 20180801
  4. BERODUAL [Concomitant]
     Active Substance: FENOTEROL HYDROBROMIDE\IPRATROPIUM BROMIDE
     Indication: LUNG DISORDER
     Dosage: UNK
     Route: 065
  5. ZOLEDRONIC ACID [Concomitant]
     Active Substance: ZOLEDRONIC ACID
     Indication: MALIGNANT NEOPLASM PROGRESSION
     Dosage: 4 MG, UNK
     Route: 065
     Dates: start: 20180704, end: 20180704
  6. OXYCODON [Concomitant]
     Active Substance: OXYCODONE
     Indication: MALIGNANT NEOPLASM PROGRESSION
     Dosage: 1 DF, BID
     Route: 065
  7. ZOLEDRONIC ACID [Concomitant]
     Active Substance: ZOLEDRONIC ACID
     Indication: PRODUCT USED FOR UNKNOWN INDICATION
     Dosage: 4 MG, UNK
     Route: 065
     Dates: start: 20180910, end: 20180910

REACTIONS (3)
  - Malignant neoplasm progression [Fatal]
  - Decubitus ulcer [Not Recovered/Not Resolved]
  - Pain [Unknown]

NARRATIVE: CASE EVENT DATE: 20180905
